FAERS Safety Report 13097035 (Version 1)
Quarter: 2017Q1

REPORT INFORMATION
  Report Type: Spontaneous
  Country: US (occurrence: US)
  Receive Date: 20170109
  Receipt Date: 20170109
  Transmission Date: 20170428
  Serious: No
  Sender: FDA-Public Use
  Company Number: US-PFIZER INC-2017006074

PATIENT
  Age: 30 Year
  Sex: Female

DRUGS (2)
  1. DILANTIN [Suspect]
     Active Substance: PHENYTOIN
     Dosage: UNK
  2. BETASINE [Suspect]
     Active Substance: BETAHISTINE
     Dosage: UNK

REACTIONS (1)
  - Drug hypersensitivity [Unknown]
